FAERS Safety Report 4918323-6 (Version None)
Quarter: 2006Q1

REPORT INFORMATION
  Report Type: 
  Country: None (occurrence: None)
  Receive Date: 20060217
  Receipt Date: 20060217
  Transmission Date: 20060701
  Serious: Yes (Other)
  Sender: FDA-Public Use
  Company Number: None

PATIENT
  Age: 30 Year
  Sex: Female
  Weight: 70.3075 kg

DRUGS (1)
  1. OVCON 35 + GENERIC OF ALESSE [Suspect]
     Dosage: ONE PO QD  AS DIRECTED
     Route: 048

REACTIONS (2)
  - MIGRAINE [None]
  - PETIT MAL EPILEPSY [None]
